FAERS Safety Report 24224252 (Version 1)
Quarter: 2024Q3

REPORT INFORMATION
  Report Type: Other
  Country: US (occurrence: US)
  Receive Date: 20240819
  Receipt Date: 20240819
  Transmission Date: 20241016
  Serious: Yes (Other)
  Sender: FAGRON COMPOUNDING SERVICES D/B/A FAGRON STERILE SERVICES, WICHITA, KS
  Company Number: US-Fagron Sterile Services-2160607

PATIENT
  Age: 30 Year
  Sex: Female
  Weight: 91.39 kg

DRUGS (3)
  1. OXYTOCIN [Suspect]
     Active Substance: OXYTOCIN
     Indication: Labour induction
     Route: 042
     Dates: start: 20240710, end: 20240710
  2. OXYTOCIN [Suspect]
     Active Substance: OXYTOCIN
     Indication: Arrested labour
  3. OXYTOCIN [Suspect]
     Active Substance: OXYTOCIN
     Indication: Caesarean section

REACTIONS (1)
  - Drug ineffective [Recovered/Resolved]

NARRATIVE: CASE EVENT DATE: 20240710
